FAERS Safety Report 7327311-4 (Version None)
Quarter: 2011Q1

REPORT INFORMATION
  Report Type: 
  Country: None (occurrence: None)
  Receive Date: 20110302
  Receipt Date: 20110302
  Transmission Date: 20110831
  Serious: Yes (Death)
  Sender: FDA-Public Use
  Company Number: DE-ABBOTT-11P-062-0708474-00

PATIENT
  Sex: Female

DRUGS (2)
  1. HUMIRA [Suspect]
     Dosage: PEN
     Dates: end: 20100301
  2. HUMIRA [Suspect]
     Indication: CROHN'S DISEASE
     Dates: start: 20100114, end: 20100319

REACTIONS (1)
  - DEATH [None]
